FAERS Safety Report 5123592-6 (Version None)
Quarter: 2006Q4

REPORT INFORMATION
  Report Type: 
  Country: None (occurrence: None)
  Receive Date: 20061010
  Receipt Date: 20060407
  Transmission Date: 20070319
  Serious: Yes (Hospitalization)
  Sender: FDA-Public Use
  Company Number: FR-BAYER-200610335BFR

PATIENT

DRUGS (2)
  1. MOXIFLOXACIN HYDROCHLORIDE [Suspect]
     Indication: TUBERCULOSIS
     Dosage: UNIT DOSE: 400 MG
     Route: 048
  2. RIMIFON [Concomitant]
     Indication: TUBERCULOSIS

REACTIONS (1)
  - DRUG ERUPTION [None]
